FAERS Safety Report 18363297 (Version 1)
Quarter: 2020Q4

REPORT INFORMATION
  Report Type: Spontaneous
  Country: DK (occurrence: DK)
  Receive Date: 20201008
  Receipt Date: 20201008
  Transmission Date: 20210114
  Serious: Yes (Hospitalization, Other)
  Sender: FDA-Public Use
  Company Number: DK-B.I. PHARMACEUTICALS,INC./RIDGEFIELD-2020-BI-052467

PATIENT
  Age: 68 Year
  Sex: Male
  Weight: 102 kg

DRUGS (9)
  1. HJERTEMAGNYL [ACETYLSALICYLIC ACID] [Concomitant]
     Active Substance: ASPIRIN
     Indication: THROMBOSIS PROPHYLAXIS
     Dosage: STRENGTH: 75 MG.
     Route: 048
     Dates: start: 20200617
  2. MIRTAZAPIN KRKA [Concomitant]
     Active Substance: MIRTAZAPINE
     Indication: DEPRESSION
     Dosage: STRENGTH: 15 MG.
     Route: 048
     Dates: start: 20180129
  3. SILDENAFIL 1A FARMA [Concomitant]
     Indication: ERECTILE DYSFUNCTION
     Dosage: STRENGTH: 50 MG. FREQUENCY:
     Route: 048
     Dates: start: 20180104
  4. PANODIL [Concomitant]
     Active Substance: ACETAMINOPHEN
     Indication: PAIN
     Dosage: STRENGTH: 500 MG. FREQUENCY:
     Route: 048
     Dates: start: 20150130
  5. SYNJARDY [Suspect]
     Active Substance: EMPAGLIFLOZIN\METFORMIN HYDROCHLORIDE
     Indication: TYPE 2 DIABETES MELLITUS
     Dosage: STRENGTH: 12.5/1000 MG
     Route: 048
     Dates: start: 20170810
  6. DIPROSALIC [Concomitant]
     Active Substance: BETAMETHASONE DIPROPIONATE
     Indication: ECZEMA
     Dosage: STRENGTH: 0.5+30 MG/G FREQUENCY:
     Route: 003
     Dates: start: 20160518
  7. OZEMPIC [Concomitant]
     Active Substance: SEMAGLUTIDE
     Indication: TYPE 2 DIABETES MELLITUS
     Dosage: STRENGTH: 0.5 MG.
     Route: 058
     Dates: start: 20181019
  8. ATORVASTATIN KRKA [Concomitant]
     Active Substance: ATORVASTATIN
     Indication: HYPERCHOLESTEROLAEMIA
     Dosage: STRENGTH: 40 MG.
     Route: 048
     Dates: start: 20200609
  9. ALENDRONAT SANDOZ [Concomitant]
     Active Substance: ALENDRONATE SODIUM
     Indication: OSTEOPOROSIS
     Dosage: STRENGTH: 70 MG.
     Route: 048
     Dates: start: 20200609

REACTIONS (3)
  - Headache [Recovered/Resolved]
  - Confusional state [Recovered/Resolved]
  - Ketoacidosis [Recovered/Resolved]

NARRATIVE: CASE EVENT DATE: 20200912
